FAERS Safety Report 10177998 (Version 1)
Quarter: 2014Q2

REPORT INFORMATION
  Report Type: Other
  Country: US (occurrence: US)
  Receive Date: 20140516
  Receipt Date: 20140516
  Transmission Date: 20141212
  Serious: No
  Sender: FDA-Public Use
  Company Number: US-LUPIN PHARMACEUTICALS INC.-2014-00971

PATIENT
  Age: 85 Year
  Sex: Female

DRUGS (1)
  1. LOSARTAN [Suspect]
     Indication: HYPERTENSION
     Route: 065

REACTIONS (2)
  - Drug dose omission [Unknown]
  - Blood pressure increased [Unknown]
